FAERS Safety Report 6027270-0 (Version None)
Quarter: 2009Q1

REPORT INFORMATION
  Report Type: 
  Country: None (occurrence: None)
  Receive Date: 20090105
  Receipt Date: 20081225
  Transmission Date: 20090719
  Serious: No
  Sender: FDA-Public Use
  Company Number: JP-JNJFOC-20081100833

PATIENT
  Sex: Female
  Weight: 37 kg

DRUGS (13)
  1. REMICADE [Suspect]
     Route: 042
  2. REMICADE [Suspect]
     Route: 042
  3. REMICADE [Suspect]
     Route: 042
  4. REMICADE [Suspect]
     Route: 042
  5. REMICADE [Suspect]
     Indication: CROHN'S DISEASE
     Route: 042
  6. PENTASA [Concomitant]
     Indication: CROHN'S DISEASE
     Route: 048
  7. RACOL [Concomitant]
     Route: 048
  8. ISCOTIN [Concomitant]
     Indication: ANTIBIOTIC PROPHYLAXIS
     Route: 048
  9. MARZULENE ES [Concomitant]
     Dosage: DOSE: 1 TABLET
     Route: 048
  10. BIOFERMIN [Concomitant]
     Indication: CROHN'S DISEASE
     Route: 048
  11. FERRUM [Concomitant]
     Indication: IRON DEFICIENCY ANAEMIA
     Route: 048
  12. TERRA-CORTRIL [Concomitant]
     Route: 048
  13. DALACIN T [Concomitant]
     Indication: DERMATITIS ACNEIFORM

REACTIONS (2)
  - DERMATITIS ACNEIFORM [None]
  - PYODERMA GANGRENOSUM [None]
